FAERS Safety Report 5120342-4 (Version None)
Quarter: 2006Q4

REPORT INFORMATION
  Report Type: 
  Country: None (occurrence: None)
  Receive Date: 20061004
  Receipt Date: 20060921
  Transmission Date: 20070319
  Serious: Yes (Hospitalization, Other)
  Sender: FDA-Public Use
  Company Number: PHBS2006CO14656

PATIENT
  Age: 44 Year
  Sex: Female

DRUGS (3)
  1. TRILEPTAL [Suspect]
     Indication: PETIT MAL EPILEPSY
     Dosage: 900 MG/DAY
     Route: 048
     Dates: start: 20060301
  2. OMEPRAZOLE [Concomitant]
  3. RANITIDINE [Concomitant]

REACTIONS (6)
  - BRAIN NEOPLASM [None]
  - BRAIN TUMOUR OPERATION [None]
  - CONVULSION [None]
  - CRANIOTOMY [None]
  - DIZZINESS [None]
  - LOSS OF CONSCIOUSNESS [None]
